FAERS Safety Report 17658276 (Version 1)
Quarter: 2020Q2

REPORT INFORMATION
  Report Type: Spontaneous
  Country: US (occurrence: US)
  Receive Date: 20200412
  Receipt Date: 20200412
  Transmission Date: 20200713
  Serious: No
  Sender: FDA-Public Use
  Company Number: US-AMGEN-USASP2020057804

PATIENT
  Age: 71 Year
  Sex: Female

DRUGS (1)
  1. EVENITY [Suspect]
     Active Substance: ROMOSOZUMAB-AQQG
     Indication: OSTEOPOROSIS POSTMENOPAUSAL
     Dosage: 210 MILLIGRAM, QMO
     Route: 065
     Dates: start: 201910

REACTIONS (14)
  - Fall [Unknown]
  - Burning sensation [Unknown]
  - Infection [Not Recovered/Not Resolved]
  - Arthropathy [Unknown]
  - Joint noise [Unknown]
  - Loose tooth [Unknown]
  - Muscle spasms [Unknown]
  - Toothache [Unknown]
  - Pain in extremity [Unknown]
  - Hypotonia [Unknown]
  - Paraesthesia [Unknown]
  - Muscular weakness [Unknown]
  - Rosacea [Unknown]
  - Joint hyperextension [Unknown]

NARRATIVE: CASE EVENT DATE: 201912
